FAERS Safety Report 4463013-X (Version None)
Quarter: 2004Q3

REPORT INFORMATION
  Report Type: 
  Country: None (occurrence: None)
  Receive Date: 20040927
  Receipt Date: 20040915
  Transmission Date: 20050211
  Serious: Yes (Other)
  Sender: FDA-Public Use
  Company Number: 2004231745JP

PATIENT
  Age: 68 Year
  Sex: Male

DRUGS (2)
  1. SOLU-MEDROL [Suspect]
     Dosage: 1000 MG, QD, IV
     Route: 042
     Dates: start: 20030812, end: 20030814
  2. DELTA-CORTEF [Suspect]
     Dosage: SEE IMAGE
     Route: 048

REACTIONS (4)
  - ANTI-NEUTROPHIL CYTOPLASMIC ANTIBODY POSITIVE VASCULITIS [None]
  - GASTRIC CANCER [None]
  - PLEURAL EFFUSION [None]
  - SCAR [None]
